FAERS Safety Report 4798415-5 (Version None)
Quarter: 2005Q4

REPORT INFORMATION
  Report Type: 
  Country: None (occurrence: None)
  Receive Date: 20051014
  Receipt Date: 20051004
  Transmission Date: 20060501
  Serious: Yes (Disabling)
  Sender: FDA-Public Use
  Company Number: 2005AP05254

PATIENT
  Age: 75 Year
  Sex: Male

DRUGS (4)
  1. MARCAINE [Suspect]
     Indication: SPINAL ANAESTHESIA
     Route: 037
     Dates: start: 20050913, end: 20050913
  2. ANAPEINE [Concomitant]
     Indication: EPIDURAL ANAESTHESIA
     Route: 008
     Dates: start: 20050913
  3. FENTANEST [Concomitant]
     Indication: EPIDURAL ANAESTHESIA
     Route: 008
     Dates: start: 20050913
  4. DROLEPTAN [Concomitant]
     Indication: EPIDURAL ANAESTHESIA
     Route: 008
     Dates: start: 20050913

REACTIONS (2)
  - ANAESTHETIC COMPLICATION [None]
  - CAUDA EQUINA SYNDROME [None]
